FAERS Safety Report 15495210 (Version 1)
Quarter: 2018Q4

REPORT INFORMATION
  Report Type: Spontaneous
  Country: US (occurrence: US)
  Receive Date: 20181012
  Receipt Date: 20181012
  Transmission Date: 20190205
  Serious: Yes (Other)
  Sender: FDA-Public Use
  Company Number: PHEH2018US042427

PATIENT
  Sex: Female

DRUGS (2)
  1. ATENOLOL SANDOZ [Suspect]
     Active Substance: ATENOLOL
     Indication: TREMOR
     Dosage: 50 MG, UNK
     Route: 065
  2. ATENOLOL SANDOZ [Suspect]
     Active Substance: ATENOLOL
     Indication: AORTIC DISORDER

REACTIONS (1)
  - Cataract [Unknown]
